FAERS Safety Report 4520851-2 (Version None)
Quarter: 2004Q4

REPORT INFORMATION
  Report Type: 
  Country: None (occurrence: None)
  Receive Date: 20041208
  Receipt Date: 20041126
  Transmission Date: 20050328
  Serious: Yes (Other)
  Sender: FDA-Public Use
  Company Number: CO-JNJFOC-20041200095

PATIENT
  Sex: Male
  Weight: 84 kg

DRUGS (3)
  1. REMICADE [Suspect]
     Route: 042
  2. REMICADE [Suspect]
     Indication: ANKYLOSING SPONDYLITIS
     Route: 042
  3. IBUPROFEN [Concomitant]
     Indication: ANKYLOSING SPONDYLITIS
     Route: 049

REACTIONS (1)
  - RETINAL DETACHMENT [None]
